FAERS Safety Report 4781566-9 (Version None)
Quarter: 2005Q3

REPORT INFORMATION
  Report Type: 
  Country: None (occurrence: None)
  Receive Date: 20050926
  Receipt Date: 20050907
  Transmission Date: 20060218
  Serious: Yes (Hospitalization)
  Sender: FDA-Public Use
  Company Number: 2003-01-0043

PATIENT
  Age: 33 Year
  Sex: Male

DRUGS (4)
  1. NEOCLARITYN (DESLORATADINE) TABLETS    ^CLARINEX^ [Suspect]
     Indication: RHINITIS PERENNIAL
  2. LOSEC [Concomitant]
  3. VOLTAREN [Concomitant]
  4. FLONASE [Concomitant]

REACTIONS (3)
  - CELLULITIS [None]
  - JOINT SWELLING [None]
  - OEDEMA PERIPHERAL [None]
